FAERS Safety Report 6838591-3 (Version None)
Quarter: 2010Q3

REPORT INFORMATION
  Report Type: 
  Country: None (occurrence: None)
  Receive Date: 20100713
  Receipt Date: 20070615
  Transmission Date: 20110219
  Serious: No
  Sender: FDA-Public Use
  Company Number: US-PFIZER INC-2007050561

PATIENT
  Sex: Female

DRUGS (8)
  1. CHANTIX [Suspect]
     Indication: SMOKING CESSATION THERAPY
     Dates: start: 20070604
  2. PREDNISOLONE [Concomitant]
     Indication: POLYMYALGIA RHEUMATICA
  3. OSCAL [Concomitant]
  4. FISH OIL [Concomitant]
  5. PRESERVISION SOFTGELS WITH LUTEIN [Concomitant]
  6. IRON [Concomitant]
  7. SUPER VITAMIN B COMPLEX [Concomitant]
  8. ACETYLSALICYLIC ACID [Concomitant]

REACTIONS (2)
  - NAUSEA [None]
  - VOMITING [None]
